FAERS Safety Report 25141388 (Version 4)
Quarter: 2025Q2

REPORT INFORMATION
  Report Type: Spontaneous
  Country: CA (occurrence: CA)
  Receive Date: 20250331
  Receipt Date: 20250630
  Transmission Date: 20250717
  Serious: Yes (Other)
  Sender: PFIZER
  Company Number: CA-PFIZER INC-202400200724

PATIENT
  Age: 52 Year
  Sex: Female

DRUGS (2)
  1. VELSIPITY [Suspect]
     Active Substance: ETRASIMOD ARGININE
     Indication: Colitis ulcerative
     Dosage: 2 MG, 1X/DAY
     Route: 048
     Dates: start: 20240620
  2. MESALAMINE [Concomitant]
     Active Substance: MESALAMINE

REACTIONS (12)
  - Cardiac arrest [Unknown]
  - Arrhythmia [Unknown]
  - Dyspnoea [Recovering/Resolving]
  - Dyspnoea exertional [Unknown]
  - Chest pain [Not Recovered/Not Resolved]
  - Hypertension [Unknown]
  - Fatigue [Unknown]
  - Abdominal pain [Recovered/Resolved]
  - Condition aggravated [Recovering/Resolving]
  - Back pain [Unknown]
  - Neuralgia [Recovered/Resolved]
  - Hepatic enzyme increased [Unknown]

NARRATIVE: CASE EVENT DATE: 20240101
